FAERS Safety Report 6635467-1 (Version None)
Quarter: 2010Q1

REPORT INFORMATION
  Report Type: 
  Country: None (occurrence: None)
  Receive Date: 20100315
  Receipt Date: 20090723
  Transmission Date: 20100710
  Serious: No
  Sender: FDA-Public Use
  Company Number: US-ABBOTT-09P-163-0587471-00

PATIENT
  Age: 31 Year
  Sex: Male

DRUGS (2)
  1. DEPAKOTE [Suspect]
     Indication: GRAND MAL CONVULSION
     Route: 048
     Dates: start: 19910101, end: 20090501
  2. DIVALPROEX SODIUM [Suspect]
     Indication: GRAND MAL CONVULSION
     Route: 048
     Dates: start: 20090501

REACTIONS (1)
  - CONVULSION [None]
